FAERS Safety Report 9650416 (Version 4)
Quarter: 2013Q4

REPORT INFORMATION
  Report Type: Report from Study
  Country: US (occurrence: US)
  Receive Date: 20131028
  Receipt Date: 20131112
  Transmission Date: 20140711
  Serious: Yes (Hospitalization)
  Sender: FDA-Public Use
  Company Number: US-ROCHE-1292580

PATIENT
  Age: 64 Year
  Sex: Male
  Weight: 96.3 kg

DRUGS (6)
  1. VEMURAFENIB [Suspect]
     Indication: NEOPLASM MALIGNANT
     Route: 048
     Dates: start: 20130913, end: 20131011
  2. VEMURAFENIB [Suspect]
     Route: 065
     Dates: start: 20131028
  3. ALPHA LIPOIC ACID [Concomitant]
     Route: 065
     Dates: start: 20120608
  4. VITAMIN C [Concomitant]
     Route: 065
     Dates: start: 20110322
  5. VITAMIN D3 [Concomitant]
     Route: 065
     Dates: start: 20110322
  6. UBIQUINONE [Concomitant]
     Route: 065
     Dates: start: 20120529

REACTIONS (1)
  - Acute febrile neutrophilic dermatosis [Recovered/Resolved]
